FAERS Safety Report 11181311 (Version 1)
Quarter: 2015Q2

REPORT INFORMATION
  Report Type: Report from Study
  Country: US (occurrence: US)
  Receive Date: 20150611
  Receipt Date: 20150611
  Transmission Date: 20150821
  Serious: Yes (Hospitalization)
  Sender: FDA-Public Use
  Company Number: US-JNJFOC-20150507208

PATIENT
  Sex: Male

DRUGS (1)
  1. REMICADE [Suspect]
     Active Substance: INFLIXIMAB
     Indication: COLITIS ULCERATIVE
     Route: 042

REACTIONS (4)
  - Sepsis [Unknown]
  - Thrombosis [Unknown]
  - Cellulitis [Unknown]
  - Streptococcal infection [Unknown]

NARRATIVE: CASE EVENT DATE: 2015
